FAERS Safety Report 23984847 (Version 1)
Quarter: 2024Q2

REPORT INFORMATION
  Report Type: Spontaneous
  Country: GB (occurrence: GB)
  Receive Date: 20240618
  Receipt Date: 20240618
  Transmission Date: 20240716
  Serious: Yes (Other)
  Sender: FDA-Public Use
  Company Number: GB-SA-2024SA164068

PATIENT
  Age: 38 Year
  Sex: Female

DRUGS (6)
  1. CLOBAZAM [Concomitant]
     Active Substance: CLOBAZAM
     Indication: Seizure cluster
     Dosage: 10 MG
     Route: 065
  2. CARBAMAZEPINE [Interacting]
     Active Substance: CARBAMAZEPINE
     Indication: Temporal lobe epilepsy
     Dosage: 1000 MILLIGRAM, QD
     Route: 065
  3. LEVETIRACETAM [Interacting]
     Active Substance: LEVETIRACETAM
     Indication: Temporal lobe epilepsy
     Dosage: 2000 MILLIGRAM, QD
     Route: 065
  4. TARIQUIDAR [Interacting]
     Active Substance: TARIQUIDAR
     Indication: Product used for unknown indication
     Dosage: UNK
     Route: 042
  5. VALPROATE SODIUM [Interacting]
     Active Substance: VALPROATE SODIUM
     Indication: Temporal lobe epilepsy
     Dosage: 1500 MILLIGRAM, QD
     Route: 065
  6. ZONISAMIDE [Interacting]
     Active Substance: ZONISAMIDE
     Indication: Temporal lobe epilepsy
     Dosage: 150 MILLIGRAM, QD
     Route: 065

REACTIONS (4)
  - Vision blurred [Unknown]
  - Nausea [Unknown]
  - Ataxia [Unknown]
  - Drug interaction [Unknown]
